FAERS Safety Report 8806167 (Version 1)
Quarter: 2012Q4

REPORT INFORMATION
  Report Type: Spontaneous
  Country: CH (occurrence: None)
  Receive Date: 20120918
  Receipt Date: 20120918
  Transmission Date: 20130627
  Serious: Yes (Hospitalization, Other)
  Sender: FDA-Public Use
  Company Number: 20120556

PATIENT
  Age: 19 Year
  Sex: Female

DRUGS (1)
  1. VENOFER [Suspect]
     Dosage: 100 mg/5 ml
     Dates: start: 20120628, end: 20120628

REACTIONS (7)
  - Exposure during pregnancy [None]
  - Chest discomfort [None]
  - Dyspnoea [None]
  - Hot flush [None]
  - Loss of consciousness [None]
  - Vomiting [None]
  - Malaise [None]
